FAERS Safety Report 23091315 (Version 1)
Quarter: 2023Q4

REPORT INFORMATION
  Report Type: Spontaneous
  Country: JP (occurrence: None)
  Receive Date: 20231020
  Receipt Date: 20231020
  Transmission Date: 20240109
  Serious: Yes (Other)
  Sender: FDA-Public Use
  Company Number: 2023A235128

PATIENT

DRUGS (2)
  1. IMFINZI [Suspect]
     Active Substance: DURVALUMAB
     Indication: Non-small cell lung cancer
     Route: 041
     Dates: start: 20200219
  2. ANTITUSSIVES AND EXPECTORANTS [Concomitant]
     Dosage: DOSE UNKNOWN
     Route: 065

REACTIONS (4)
  - Malignant neoplasm progression [Unknown]
  - Radiation pneumonitis [Recovering/Resolving]
  - Axillary mass [Unknown]
  - Pneumonia [Unknown]

NARRATIVE: CASE EVENT DATE: 20200408
